FAERS Safety Report 6421415-6 (Version None)
Quarter: 2009Q4

REPORT INFORMATION
  Report Type: 
  Country: None (occurrence: None)
  Receive Date: 20091030
  Receipt Date: 20091020
  Transmission Date: 20100525
  Serious: Yes (Other)
  Sender: FDA-Public Use
  Company Number: US-WYE-H11702009

PATIENT
  Sex: Female
  Weight: 95.34 kg

DRUGS (1)
  1. PRISTIQ [Suspect]
     Indication: DEPRESSION
     Route: 048
     Dates: start: 20090121, end: 20090216

REACTIONS (5)
  - APATHY [None]
  - CONTUSION [None]
  - MENORRHAGIA [None]
  - THYROID FUNCTION TEST ABNORMAL [None]
  - WEIGHT INCREASED [None]
